FAERS Safety Report 17830304 (Version 1)
Quarter: 2020Q2

REPORT INFORMATION
  Report Type: Spontaneous
  Country: JP (occurrence: JP)
  Receive Date: 20200527
  Receipt Date: 20200527
  Transmission Date: 20200714
  Serious: Yes (Other)
  Sender: FDA-Public Use
  Company Number: JP-PFIZER INC-2020196994

PATIENT

DRUGS (2)
  1. METHOTREXATE 1000MG [Suspect]
     Active Substance: METHOTREXATE
     Dosage: UNK
  2. METHOTREXATE 1000MG [Suspect]
     Active Substance: METHOTREXATE
     Dosage: UNK, CYCLIC (HIGH DOSE)

REACTIONS (1)
  - Drug level increased [Unknown]
